FAERS Safety Report 16300968 (Version 2)
Quarter: 2020Q4

REPORT INFORMATION
  Report Type: Spontaneous
  Country: US (occurrence: US)
  Receive Date: 20190510
  Receipt Date: 20201211
  Transmission Date: 20210113
  Serious: Yes (Death, Other)
  Sender: FDA-Public Use
  Company Number: US-ASTRAZENECA-2019SE66324

PATIENT
  Age: 7307 Day
  Sex: Male
  Weight: 277.1 kg

DRUGS (14)
  1. PRILOSEC [Suspect]
     Active Substance: OMEPRAZOLE MAGNESIUM
     Indication: GASTROOESOPHAGEAL REFLUX DISEASE
     Route: 048
     Dates: start: 20080424
  2. ZYRTEC [Concomitant]
     Active Substance: CETIRIZINE HYDROCHLORIDE
  3. ALBUTEROL SULFATE. [Concomitant]
     Active Substance: ALBUTEROL SULFATE
  4. PRILOSEC [Suspect]
     Active Substance: OMEPRAZOLE MAGNESIUM
     Indication: GASTROOESOPHAGEAL REFLUX DISEASE
     Route: 048
     Dates: start: 19950420, end: 20121028
  5. ZITHROMAX [Concomitant]
     Active Substance: AZITHROMYCIN DIHYDRATE
  6. PRILOSEC [Suspect]
     Active Substance: OMEPRAZOLE MAGNESIUM
     Indication: GASTROOESOPHAGEAL REFLUX DISEASE
     Route: 048
     Dates: start: 199504, end: 201210
  7. CALCITRIOL. [Concomitant]
     Active Substance: CALCITRIOL
  8. RANITIDINE. [Concomitant]
     Active Substance: RANITIDINE
     Dates: start: 2002, end: 2012
  9. BICITRA [Concomitant]
     Active Substance: CITRIC ACID, 1-STEARYL ESTER\SODIUM CITRATE
  10. IBUPROFEN. [Concomitant]
     Active Substance: IBUPROFEN
     Indication: MALAISE
     Dates: start: 2007, end: 2012
  11. BACTROBAN [Concomitant]
     Active Substance: MUPIROCIN\MUPIROCIN CALCIUM
  12. DEPAKOTE [Concomitant]
     Active Substance: DIVALPROEX SODIUM
     Indication: SEIZURE
  13. FLOVENT [Concomitant]
     Active Substance: FLUTICASONE PROPIONATE
     Indication: ASTHMA
  14. DALLERGY [Concomitant]
     Active Substance: CHLORCYCLIZINE HYDROCHLORIDE\PHENYLEPHRINE\PHENYLEPHRINE HYDROCHLORIDE

REACTIONS (6)
  - Renal failure [Unknown]
  - Acute kidney injury [Unknown]
  - Fluid overload [Fatal]
  - End stage renal disease [Fatal]
  - Hyperkalaemia [Fatal]
  - Chronic kidney disease [Unknown]

NARRATIVE: CASE EVENT DATE: 20100503
